FAERS Safety Report 6965606-4 (Version None)
Quarter: 2010Q3

REPORT INFORMATION
  Report Type: 
  Country: None (occurrence: None)
  Receive Date: 20100903
  Receipt Date: 20100824
  Transmission Date: 20110219
  Serious: Yes (Other)
  Sender: FDA-Public Use
  Company Number: CA-BAYER-201019628BCC

PATIENT
  Age: 72 Year
  Sex: Female
  Weight: 80 kg

DRUGS (1)
  1. ALEVE (CAPLET) [Suspect]
     Indication: PRODUCT USED FOR UNKNOWN INDICATION
     Dosage: UNIT DOSE: 220 MG
     Route: 065

REACTIONS (5)
  - ASTHENIA [None]
  - CHILLS [None]
  - HYPERHIDROSIS [None]
  - LETHARGY [None]
  - NON-CARDIAC CHEST PAIN [None]
